FAERS Safety Report 5496546-8 (Version None)
Quarter: 2007Q4

REPORT INFORMATION
  Report Type: 
  Country: None (occurrence: None)
  Receive Date: 20071025
  Receipt Date: 20070614
  Transmission Date: 20080405
  Serious: No
  Sender: FDA-Public Use
  Company Number: A0656602A

PATIENT
  Age: 67 Year
  Sex: Female

DRUGS (13)
  1. ADVAIR DISKUS 100/50 [Suspect]
     Indication: CHRONIC OBSTRUCTIVE PULMONARY DISEASE
     Dosage: 2PUFF TWICE PER DAY
     Route: 055
     Dates: start: 20020101
  2. ALBUTEROL [Concomitant]
  3. RHINOCORT [Concomitant]
  4. LEVOXYL [Concomitant]
  5. HYZAAR [Concomitant]
  6. THEO-DUR [Concomitant]
  7. CLARINEX [Concomitant]
  8. PREVACID [Concomitant]
  9. EVISTA [Concomitant]
  10. ACTONEL [Concomitant]
  11. SINGULAIR [Concomitant]
  12. UNKNOWN MEDICATION [Concomitant]
  13. PREDNISONE [Concomitant]

REACTIONS (2)
  - DRUG ADMINISTRATION ERROR [None]
  - DRUG INEFFECTIVE [None]
